FAERS Safety Report 8844481 (Version 1)
Quarter: 2012Q4

REPORT INFORMATION
  Report Type: 
  Country: DE (occurrence: DE)
  Receive Date: 20121017
  Receipt Date: 20121017
  Transmission Date: 20130627
  Serious: Yes (Other)
  Sender: FDA-Public Use
  Company Number: DE-SANOFI-AVENTIS-2012SA075450

PATIENT
  Age: 24 Year
  Sex: Female
  Weight: 47 kg

DRUGS (6)
  1. QUENSYL [Suspect]
     Indication: CREST SYNDROME
     Dosage: 200 [mg/d ]
     Route: 048
  2. PREDNISOLON [Concomitant]
     Indication: CREST SYNDROME
     Dosage: 5 [mg/d ]
     Route: 048
  3. ACETYLSALICYLSAEURE [Concomitant]
     Indication: FACTOR V LEIDEN MUTATION
     Dosage: 100 [mg/d ]
     Route: 048
     Dates: start: 20110906
  4. FRAGMIN P [Concomitant]
     Indication: FACTOR V LEIDEN MUTATION
     Route: 058
     Dates: start: 20110906
  5. FOLIC ACID [Concomitant]
     Indication: PROPHYLAXIS OF NEURAL TUBE DEFECT
     Dosage: 0.8 [mg/d ]
     Route: 048
     Dates: start: 20111106
  6. LANICOR [Concomitant]
     Indication: FOETAL SUPRAVENTRICULAR TACHYCARDIA
     Dosage: 0.25 [mg/d ]/ digoxin concentration in mother on the 13th of March: 0.92?g/l
     Route: 048
     Dates: start: 20120208, end: 20120420

REACTIONS (3)
  - Pyrexia [Unknown]
  - Exposure during pregnancy [Unknown]
  - Obstructed labour [Unknown]
